FAERS Safety Report 25676346 (Version 4)
Quarter: 2025Q4

REPORT INFORMATION
  Report Type: Report from Study
  Country: CA (occurrence: CA)
  Receive Date: 20250813
  Receipt Date: 20251105
  Transmission Date: 20260118
  Serious: Yes (Other)
  Sender: TAKEDA
  Company Number: CA-TAKEDA-2025TUS063735

PATIENT
  Age: 40 Year
  Sex: Female

DRUGS (9)
  1. VEDOLIZUMAB [Suspect]
     Active Substance: VEDOLIZUMAB
     Indication: Colitis ulcerative
     Dosage: 300 MILLIGRAM
  2. VEDOLIZUMAB [Suspect]
     Active Substance: VEDOLIZUMAB
     Dosage: 300 MILLIGRAM
  3. VEDOLIZUMAB [Suspect]
     Active Substance: VEDOLIZUMAB
     Dosage: 300 MILLIGRAM, Q4WEEKS
     Dates: start: 20250822
  4. VEDOLIZUMAB [Suspect]
     Active Substance: VEDOLIZUMAB
     Dosage: 300 MILLIGRAM, Q4WEEKS
  5. Salofalk [Concomitant]
     Dosage: UNK UNK, QD
     Dates: start: 2020
  6. Salofalk [Concomitant]
     Dosage: 4 GRAM, QD
  7. MESALAMINE [Concomitant]
     Active Substance: MESALAMINE
     Dosage: UNK UNK, QD
     Dates: start: 2021
  8. ESCITALOPRAM [Concomitant]
     Active Substance: ESCITALOPRAM OXALATE
     Indication: Anxiety
     Dosage: UNK
  9. IRON [Concomitant]
     Active Substance: IRON
     Indication: Anaemia
     Dosage: UNK UNK, QD

REACTIONS (11)
  - Colitis ulcerative [Unknown]
  - Off label use [Unknown]
  - Mucous stools [Unknown]
  - Large intestine polyp [Unknown]
  - Anorectal polyp [Unknown]
  - Diverticulum intestinal [Unknown]
  - Haemorrhoids [Unknown]
  - Abdominal distension [Unknown]
  - Constipation [Unknown]
  - Flatulence [Unknown]
  - Fatigue [Unknown]

NARRATIVE: CASE EVENT DATE: 20250822
